FAERS Safety Report 15594351 (Version 1)
Quarter: 2018Q4

REPORT INFORMATION
  Report Type: Spontaneous
  Country: DE (occurrence: DE)
  Receive Date: 20181107
  Receipt Date: 20181107
  Transmission Date: 20190205
  Serious: Yes (Other)
  Sender: FDA-Public Use
  Company Number: DE-MERZ NORTH AMERICA, INC.-18MRZ-00578

PATIENT
  Age: 52 Year
  Sex: Female

DRUGS (1)
  1. ASCLERA [Suspect]
     Active Substance: POLIDOCANOL
     Indication: VARICOSE VEIN
     Dosage: UNKNOWN
     Route: 042

REACTIONS (6)
  - Dermatitis allergic [Unknown]
  - Erythema [Unknown]
  - Fatigue [Unknown]
  - Breast induration [Unknown]
  - Mastitis [Unknown]
  - Breast inflammation [Unknown]
